FAERS Safety Report 24085273 (Version 1)
Quarter: 2024Q3

REPORT INFORMATION
  Report Type: Report from Study
  Country: AT (occurrence: AT)
  Receive Date: 20240712
  Receipt Date: 20240712
  Transmission Date: 20241017
  Serious: Yes (Hospitalization, Other)
  Sender: PFIZER
  Company Number: AT-ROCHE-3123706

PATIENT
  Age: 47 Year
  Sex: Female

DRUGS (43)
  1. TUKYSA [Suspect]
     Active Substance: TUCATINIB
     Indication: HER2 positive breast cancer
     Dosage: 150 MG, 4X/DAY
     Route: 048
     Dates: start: 20210512, end: 20210513
  2. TUKYSA [Suspect]
     Active Substance: TUCATINIB
     Dosage: 150 MG, 4X/DAY
     Route: 048
     Dates: start: 20210515, end: 20211124
  3. HERCEPTIN [Suspect]
     Active Substance: TRASTUZUMAB
     Indication: HER2 positive breast cancer
     Dosage: 8 MG/KG, EVERY 3 WEEKS
     Route: 042
     Dates: start: 20180924, end: 20180924
  4. HERCEPTIN [Suspect]
     Active Substance: TRASTUZUMAB
     Dosage: 6 MG/KG, EVERY 3 WEEKS
     Route: 042
     Dates: start: 20181015, end: 20200910
  5. HERCEPTIN [Suspect]
     Active Substance: TRASTUZUMAB
     Dosage: 8 MG/KG, EVERY 3 WEEKS
     Route: 042
     Dates: start: 20210512, end: 20211103
  6. XELODA [Suspect]
     Active Substance: CAPECITABINE
     Indication: HER2 positive breast cancer
     Dosage: 500 MG
     Route: 048
     Dates: start: 20210512, end: 20210513
  7. XELODA [Suspect]
     Active Substance: CAPECITABINE
     Dosage: 500 MG
     Route: 048
     Dates: start: 20210515, end: 20211124
  8. PERTUZUMAB [Suspect]
     Active Substance: PERTUZUMAB
     Indication: HER2 positive breast cancer
     Dosage: 840 MG, EVERY 3 WEEKS
     Route: 042
     Dates: start: 20180924, end: 20180924
  9. PERTUZUMAB [Suspect]
     Active Substance: PERTUZUMAB
     Dosage: 420 MG, EVERY 3 WEEKS
     Route: 042
     Dates: start: 20181015, end: 20200910
  10. ADO-TRASTUZUMAB EMTANSINE [Suspect]
     Active Substance: ADO-TRASTUZUMAB EMTANSINE
     Indication: HER2 positive breast cancer
     Dosage: 3.6 MG/KG, EVERY 3 WEEKS
     Route: 042
     Dates: start: 20201001, end: 20210421
  11. DENOSUMAB [Suspect]
     Active Substance: DENOSUMAB
     Indication: HER2 positive breast cancer
     Dosage: 120 MG, CYCLIC (EVERY 4 WEEKS)
     Route: 058
     Dates: start: 20180918
  12. FAM-TRASTUZUMAB DERUXTECAN-NXKI [Suspect]
     Active Substance: FAM-TRASTUZUMAB DERUXTECAN-NXKI
     Indication: HER2 positive breast cancer
     Dosage: 5.4 MG/KG, EVERY 3WEEKS
     Route: 042
     Dates: start: 20211213
  13. DOCETAXEL [Suspect]
     Active Substance: DOCETAXEL\DOCETAXEL ANHYDROUS
     Indication: HER2 positive breast cancer
     Dosage: 75 MG/M2, EVERY 3 WEEKS
     Route: 042
     Dates: start: 20180924, end: 20190123
  14. CITRIC ACID MONOHYDRATE\POTASSIUM BICARBONATE\POTASSIUM CITRATE [Concomitant]
     Active Substance: CITRIC ACID MONOHYDRATE\POTASSIUM BICARBONATE\POTASSIUM CITRATE
     Dosage: UNK
  15. ZOFRAN [Concomitant]
     Active Substance: ONDANSETRON HYDROCHLORIDE
     Dosage: 1.00 AMPULE
     Route: 042
     Dates: start: 20180924, end: 20210421
  16. ZOFRAN [Concomitant]
     Active Substance: ONDANSETRON HYDROCHLORIDE
     Dosage: 8 MG
     Route: 048
     Dates: start: 20181016, end: 20190308
  17. ZOFRAN [Concomitant]
     Active Substance: ONDANSETRON HYDROCHLORIDE
     Dosage: EVERY 3 WEEKS BEFORE EACH CHEMOTHERAPY  21/APR/2021
     Route: 042
     Dates: start: 20211213
  18. ZOFRAN [Concomitant]
     Active Substance: ONDANSETRON HYDROCHLORIDE
     Dosage: EVERY 3 WEEKS FOR 2 DAYS
     Route: 048
     Dates: start: 20220124
  19. CLINDAMYCIN [Concomitant]
     Active Substance: CLINDAMYCIN
     Dosage: UNK
  20. OCTENISEPT [OCTENIDINE HYDROCHLORIDE;PHENOXYETHANOL] [Concomitant]
     Dosage: UNK
  21. CALCIDURAN [ASCORBIC ACID;CALCIUM PHOSPHATE;CITRIC ACID;COLECALCIFEROL [Concomitant]
     Dosage: UNK
     Dates: start: 20190827
  22. DEXAMETHASONE [Concomitant]
     Active Substance: DEXAMETHASONE
     Dosage: 8 MG, MONTHLY
     Route: 048
     Dates: start: 20181016, end: 20181017
  23. DEXAMETHASONE [Concomitant]
     Active Substance: DEXAMETHASONE
     Dosage: 8 MG, MONTHLY
     Route: 042
     Dates: start: 20211213
  24. DEXAMETHASONE [Concomitant]
     Active Substance: DEXAMETHASONE
     Dosage: 8 MG
     Route: 048
     Dates: start: 20220124
  25. DRONABINOL [Concomitant]
     Active Substance: DRONABINOL
     Dosage: 2 DROP, 3X/DAY
     Dates: start: 20190123
  26. DRONABINOL [Concomitant]
     Active Substance: DRONABINOL
     Dosage: UNK
     Dates: start: 20210304
  27. TRAMADOL [Concomitant]
     Active Substance: TRAMADOL\TRAMADOL HYDROCHLORIDE
     Dosage: 100 MG
     Route: 048
     Dates: start: 2018, end: 20190514
  28. MODERNA COVID-19 VACCINE [Concomitant]
     Active Substance: ELASOMERAN
     Dosage: DOSE NUMBER UNKNOWN, 0.5 ML SINGLE
     Route: 030
     Dates: start: 20210315, end: 20210315
  29. MODERNA COVID-19 VACCINE [Concomitant]
     Active Substance: ELASOMERAN
     Dosage: DOSE NUMBER UNKNOWN, 0.5 ML SINGLE
     Route: 030
     Dates: start: 20210412, end: 20210412
  30. LORAZEPAM [Concomitant]
     Active Substance: LORAZEPAM
     Indication: Epilepsy
     Dosage: 2 MG
     Route: 042
     Dates: start: 20210513
  31. TRAMADOL [Concomitant]
     Active Substance: TRAMADOL\TRAMADOL HYDROCHLORIDE
     Dosage: 50 MG
     Route: 048
     Dates: start: 2018, end: 20190308
  32. LOVENOX [Concomitant]
     Active Substance: ENOXAPARIN SODIUM
     Dosage: 20 MG, 1X/DAY
     Route: 058
     Dates: start: 20211124
  33. ALPRAZOLAM [Concomitant]
     Active Substance: ALPRAZOLAM
     Dosage: UNK
     Dates: start: 20181114
  34. KEPPRA [Concomitant]
     Active Substance: LEVETIRACETAM
     Indication: Epilepsy
     Dosage: 1000 MG
     Dates: start: 20210513
  35. XGEVA [Concomitant]
     Active Substance: DENOSUMAB
     Dosage: 120 MG, MONTHLY
     Route: 013
     Dates: start: 20180918
  36. POTASSIUM CHLORIDE [Concomitant]
     Active Substance: POTASSIUM CHLORIDE
     Dosage: UNK
  37. NOVALGIN (METAMIZOLE SODIUM) [Concomitant]
     Active Substance: METAMIZOLE SODIUM
     Dosage: 20 DROP
     Route: 048
     Dates: start: 2018, end: 20210309
  38. TAMOXIFEN [Concomitant]
     Active Substance: TAMOXIFEN
     Dosage: 200 MG, 1X/DAY
     Route: 048
     Dates: start: 20200325, end: 20200930
  39. PRAM [CITALOPRAM HYDROBROMIDE] [Concomitant]
     Dosage: 40 MG, 1X/DAY
     Route: 048
  40. ERYTHROPOIETIN [Concomitant]
     Active Substance: ERYTHROPOIETIN
     Dosage: 30000 IU, WEEKLY
     Route: 058
     Dates: start: 20181016, end: 20190308
  41. POTASSIUM CHLORIDE [Concomitant]
     Active Substance: POTASSIUM CHLORIDE
     Dosage: UNK
  42. LOPERAMIDE HYDROCHLORIDE [Concomitant]
     Active Substance: LOPERAMIDE HYDROCHLORIDE
     Indication: Diarrhoea
     Dosage: UNK
     Dates: start: 20211124
  43. EMEND [Concomitant]
     Active Substance: APREPITANT
     Dosage: 80 MG (4 DAYS CONSECUTIVELY EVERY 4 WEEKS)
     Route: 048
     Dates: start: 20181114, end: 20190125

REACTIONS (5)
  - Soft tissue infection [Recovered/Resolved]
  - Syncope [Recovered/Resolved]
  - Diarrhoea [Recovered/Resolved]
  - Hypokalaemia [Recovered/Resolved]
  - COVID-19 [Recovered/Resolved]

NARRATIVE: CASE EVENT DATE: 20211123
